FAERS Safety Report 10077153 (Version 2)
Quarter: 2018Q4

REPORT INFORMATION
  Report Type: Spontaneous
  Country: US (occurrence: US)
  Receive Date: 20140414
  Receipt Date: 20181126
  Transmission Date: 20190204
  Serious: Yes (Other)
  Sender: FDA-Public Use
  Company Number: US-TEVA-475587USA

PATIENT
  Age: 39 Year
  Sex: Female
  Weight: 59.93 kg

DRUGS (3)
  1. PLAN B ONE-STEP [Suspect]
     Active Substance: LEVONORGESTREL
     Indication: POST COITAL CONTRACEPTION
     Dosage: 1.5 MILLIGRAM DAILY;
     Route: 048
     Dates: start: 20140323, end: 20140323
  2. VILAZODONE [Concomitant]
     Active Substance: VILAZODONE
     Indication: DEPRESSION
  3. QVAR [Concomitant]
     Active Substance: BECLOMETHASONE DIPROPIONATE
     Indication: ASTHMA

REACTIONS (6)
  - Pregnancy after post coital contraception [Unknown]
  - Drug ineffective [Unknown]
  - Metrorrhagia [Not Recovered/Not Resolved]
  - Menstruation irregular [Recovered/Resolved]
  - Maternal exposure before pregnancy [Unknown]
  - Pelvic pain [Not Recovered/Not Resolved]

NARRATIVE: CASE EVENT DATE: 20140403
